FAERS Safety Report 24191909 (Version 1)
Quarter: 2024Q3

REPORT INFORMATION
  Report Type: Spontaneous
  Country: GB (occurrence: GB)
  Receive Date: 20240809
  Receipt Date: 20240809
  Transmission Date: 20241016
  Serious: Yes (Other)
  Sender: NOVO NORDISK
  Company Number: GB-MHRA-TPP35736601C22275880YC1722252636669

PATIENT
  Age: 63 Year
  Sex: Male
  Weight: 112 kg

DRUGS (11)
  1. TRULICITY [Concomitant]
     Active Substance: DULAGLUTIDE
     Indication: Ill-defined disorder
     Dosage: UNK, QW
     Dates: start: 20240430
  2. SEMAGLUTIDE [Concomitant]
     Active Substance: SEMAGLUTIDE
     Indication: Ill-defined disorder
     Dosage: UNK, QD
     Dates: start: 20240509, end: 20240729
  3. DAPAGLIFLOZIN [Concomitant]
     Active Substance: DAPAGLIFLOZIN
     Indication: Ill-defined disorder
     Dosage: UNK, QD
     Dates: start: 20231026
  4. LIPITOR [Concomitant]
     Active Substance: ATORVASTATIN CALCIUM
     Indication: Ill-defined disorder
     Dosage: UNK, QD
     Dates: start: 20231026
  5. LOSARTAN [Concomitant]
     Active Substance: LOSARTAN\LOSARTAN POTASSIUM
     Indication: Ill-defined disorder
     Dosage: UNK, QD
     Dates: start: 20231026
  6. METFORMIN [Concomitant]
     Active Substance: METFORMIN HYDROCHLORIDE
     Indication: Ill-defined disorder
     Dosage: UNK (TWO  TWICE A DAY)
     Dates: start: 20231026
  7. CETRABEN [LIGHT LIQUID PARAFFIN;WHITE SOFT PARAFFIN] [Concomitant]
     Indication: Ill-defined disorder
     Dosage: UNK (APPLY TO AFFECTED AREA ON FEET AS PER PODIATRY)
     Dates: start: 20240212
  8. HYLO FORTE [Concomitant]
     Indication: Ill-defined disorder
     Dosage: UNK (ONE DROP FOUR TIMES A DAY INTO BOTH EYES)
     Dates: start: 20240322
  9. NAFRONYL OXALATE [Concomitant]
     Active Substance: NAFRONYL OXALATE
     Indication: Ill-defined disorder
     Dosage: UNK, TID (ONE TO BE TAKEN THREE TIMES A DAY FOR FEET/LEGS)
     Dates: start: 20240325
  10. OZEMPIC [Concomitant]
     Active Substance: SEMAGLUTIDE
     Indication: Ill-defined disorder
     Dosage: UNK, QW
     Dates: start: 20240410, end: 20240430
  11. RYBELSUS [Suspect]
     Active Substance: SEMAGLUTIDE
     Indication: Ill-defined disorder
     Dosage: UNK
     Route: 048
     Dates: start: 20240401, end: 20240610

REACTIONS (1)
  - Chest discomfort [Recovered/Resolved]

NARRATIVE: CASE EVENT DATE: 20240401
